FAERS Safety Report 22279462 (Version 2)
Quarter: 2023Q2

REPORT INFORMATION
  Report Type: Spontaneous
  Country: CN (occurrence: CN)
  Receive Date: 20230503
  Receipt Date: 20230505
  Transmission Date: 20230722
  Serious: Yes (Other)
  Sender: FDA-Public Use
  Company Number: CN-PFIZER INC-PV202300077090

PATIENT
  Age: 82 Year
  Sex: Female
  Weight: 82 kg

DRUGS (1)
  1. DIFLUCAN [Suspect]
     Active Substance: FLUCONAZOLE
     Indication: Urinary tract infection
     Dosage: 200 MG, 1X/DAY
     Route: 041
     Dates: start: 20230401, end: 20230408

REACTIONS (3)
  - Rash [Recovered/Resolved]
  - Rash erythematous [Recovered/Resolved]
  - Skin oedema [Recovered/Resolved]

NARRATIVE: CASE EVENT DATE: 20230408
